FAERS Safety Report 12084281 (Version 1)
Quarter: 2016Q1

REPORT INFORMATION
  Report Type: Spontaneous
  Country: IT (occurrence: IT)
  Receive Date: 20160217
  Receipt Date: 20160217
  Transmission Date: 20160526
  Serious: Yes (Hospitalization)
  Sender: FDA-Public Use
  Company Number: IT-TEVA-633790ACC

PATIENT
  Age: 50 Year
  Sex: Female

DRUGS (3)
  1. GARDENALE - 100 MG COMPRESSE - SANOFI S.P.A. [Suspect]
     Active Substance: PHENOBARBITAL
     Indication: INTENTIONAL SELF-INJURY
     Dosage: 40 DF TOTAL
     Route: 048
     Dates: start: 20160126, end: 20160126
  2. SERTRALINE [Suspect]
     Active Substance: SERTRALINE HYDROCHLORIDE
     Indication: INTENTIONAL SELF-INJURY
     Dosage: 20 DF TOTAL
     Route: 048
     Dates: start: 20160126, end: 20160126
  3. TAVOR (LORAZEPAM) [Suspect]
     Active Substance: LORAZEPAM
     Indication: INTENTIONAL SELF-INJURY
     Dosage: 10 DF TOTAL
     Route: 048
     Dates: start: 20160126, end: 20160126

REACTIONS (5)
  - Drug abuse [Unknown]
  - Sopor [Unknown]
  - Intentional self-injury [Unknown]
  - Anal sphincter atony [Unknown]
  - Dysstasia [Unknown]

NARRATIVE: CASE EVENT DATE: 20160126
